FAERS Safety Report 4864909-7 (Version None)
Quarter: 2005Q4

REPORT INFORMATION
  Report Type: 
  Country: None (occurrence: None)
  Receive Date: 20051201
  Receipt Date: 20050801
  Transmission Date: 20060501
  Serious: No
  Sender: FDA-Public Use
  Company Number: 2005PV000696

PATIENT
  Age: 41 Year
  Sex: Female
  Weight: 53.5244 kg

DRUGS (5)
  1. BYETTA [Suspect]
     Indication: DIABETES MELLITUS NON-INSULIN-DEPENDENT
     Dosage: 5 MCG; BID; SC
     Route: 058
     Dates: start: 20050715, end: 20050806
  2. CLONAZEPAM [Concomitant]
  3. STARLIX [Concomitant]
  4. LANTUS [Concomitant]
  5. PLAQUENIL [Concomitant]

REACTIONS (14)
  - BLOOD GLUCOSE DECREASED [None]
  - BLOOD INSULIN DECREASED [None]
  - BLOOD PRESSURE INCREASED [None]
  - EYE SWELLING [None]
  - FEELING JITTERY [None]
  - HEADACHE [None]
  - HYPERACUSIS [None]
  - MIGRAINE WITH AURA [None]
  - MUSCULOSKELETAL STIFFNESS [None]
  - NAUSEA [None]
  - OEDEMA PERIPHERAL [None]
  - PHOTOSENSITIVITY REACTION [None]
  - VISUAL DISTURBANCE [None]
  - WEIGHT INCREASED [None]
